FAERS Safety Report 6523635-9 (Version None)
Quarter: 2009Q4

REPORT INFORMATION
  Report Type: 
  Country: None (occurrence: None)
  Receive Date: 20091231
  Receipt Date: 20091229
  Transmission Date: 20100525
  Serious: Yes (Death)
  Sender: FDA-Public Use
  Company Number: PHHY2009CA59460

PATIENT
  Sex: Female

DRUGS (2)
  1. SANDOSTATIN LAR [Suspect]
     Indication: HYPONATRAEMIA
     Dosage: 20 MG, QMO
     Route: 030
     Dates: start: 20090415, end: 20091128
  2. SANDOSTATIN LAR [Suspect]
     Indication: ILEOSTOMY

REACTIONS (1)
  - DEATH [None]
